FAERS Safety Report 19164000 (Version 1)
Quarter: 2021Q2

REPORT INFORMATION
  Report Type: Spontaneous
  Country: DE (occurrence: DE)
  Receive Date: 20210421
  Receipt Date: 20210421
  Transmission Date: 20210717
  Serious: Yes (Other)
  Sender: FDA-Public Use
  Company Number: DE-PFIZER INC-2021389358

PATIENT
  Age: 32 Year
  Sex: Female
  Weight: 65 kg

DRUGS (1)
  1. CYTOTEC [Suspect]
     Active Substance: MISOPROSTOL
     Indication: LABOUR INDUCTION
     Dosage: UNK
     Route: 048
     Dates: start: 20171009

REACTIONS (5)
  - Birth trauma [Unknown]
  - Maternal exposure during pregnancy [Unknown]
  - Blood loss anaemia [Unknown]
  - Uterine tachysystole [Unknown]
  - Off label use [Unknown]

NARRATIVE: CASE EVENT DATE: 201710
